FAERS Safety Report 16667293 (Version 1)
Quarter: 2019Q3

REPORT INFORMATION
  Report Type: Report from Study
  Country: JP (occurrence: JP)
  Receive Date: 20190805
  Receipt Date: 20190805
  Transmission Date: 20191004
  Serious: Yes (Other)
  Sender: FDA-Public Use
  Company Number: JP-ROCHE-2367982

PATIENT

DRUGS (8)
  1. ELTROMBOPAG [Suspect]
     Active Substance: ELTROMBOPAG
     Indication: HEPATIC CIRRHOSIS
  2. PEGINTERFERON ALFA-2A. [Suspect]
     Active Substance: PEGINTERFERON ALFA-2A
     Indication: CHRONIC HEPATITIS C
     Route: 065
  3. RIBAVIRIN. [Suspect]
     Active Substance: RIBAVIRIN
     Indication: CHRONIC HEPATITIS C
     Route: 065
  4. PEGINTERFERON ALFA-2B [Suspect]
     Active Substance: PEGINTERFERON ALFA-2B
     Indication: HEPATIC CIRRHOSIS
  5. PEGINTERFERON ALFA-2A. [Suspect]
     Active Substance: PEGINTERFERON ALFA-2A
     Indication: HEPATIC CIRRHOSIS
  6. RIBAVIRIN. [Suspect]
     Active Substance: RIBAVIRIN
     Indication: HEPATIC CIRRHOSIS
  7. PEGINTERFERON ALFA-2B [Suspect]
     Active Substance: PEGINTERFERON ALFA-2B
     Indication: CHRONIC HEPATITIS C
     Route: 065
  8. ELTROMBOPAG [Suspect]
     Active Substance: ELTROMBOPAG
     Indication: CHRONIC HEPATITIS C
     Route: 065

REACTIONS (12)
  - Neutrophil count decreased [Unknown]
  - Neutropenia [Unknown]
  - Thrombocytosis [Unknown]
  - Haemoglobin decreased [Unknown]
  - Leukopenia [Unknown]
  - Trigeminal neuralgia [Unknown]
  - Anaemia [Unknown]
  - White blood cell count decreased [Unknown]
  - Hepatocellular carcinoma [Unknown]
  - Weight decreased [Unknown]
  - Thrombocytopenia [Unknown]
  - Herpes zoster [Unknown]
